FAERS Safety Report 4961868-3 (Version None)
Quarter: 2006Q2

REPORT INFORMATION
  Report Type: 
  Country: None (occurrence: None)
  Receive Date: 20060404
  Receipt Date: 20060203
  Transmission Date: 20061013
  Serious: Yes (Disabling)
  Sender: FDA-Public Use
  Company Number: US-AVENTIS-200611477US

PATIENT
  Sex: Male
  Weight: 81.6 kg

DRUGS (1)
  1. KETEK [Suspect]
     Indication: SINUSITIS
     Dates: start: 20051226, end: 20051231

REACTIONS (5)
  - ALANINE AMINOTRANSFERASE INCREASED [None]
  - ASPARTATE AMINOTRANSFERASE INCREASED [None]
  - BLOOD ALKALINE PHOSPHATASE INCREASED [None]
  - BLOOD BILIRUBIN INCREASED [None]
  - JAUNDICE [None]
